FAERS Safety Report 20883383 (Version 9)
Quarter: 2022Q4

REPORT INFORMATION
  Report Type: Report from Study
  Country: ES (occurrence: ES)
  Receive Date: 20220527
  Receipt Date: 20221004
  Transmission Date: 20230112
  Serious: Yes (Hospitalization, Other)
  Sender: FDA-Public Use
  Company Number: ES-GILEAD-2022-0582201

PATIENT
  Age: 65 Year
  Sex: Male
  Weight: 76 kg

DRUGS (44)
  1. BREXUCABTAGENE AUTOLEUCEL [Suspect]
     Active Substance: BREXUCABTAGENE AUTOLEUCEL
     Indication: Mantle cell lymphoma
     Dosage: 68
     Route: 042
     Dates: start: 20220509, end: 20220509
  2. CYCLOPHOSPHAMIDE [Suspect]
     Active Substance: CYCLOPHOSPHAMIDE
     Indication: Bone marrow conditioning regimen
     Dosage: 943.3
     Route: 042
     Dates: start: 20220504, end: 20220506
  3. FLUDARABINE [Suspect]
     Active Substance: FLUDARABINE PHOSPHATE
     Indication: Bone marrow conditioning regimen
     Dosage: 57
     Route: 042
     Dates: start: 20220504, end: 20220506
  4. OMEPRAZOLE [Concomitant]
     Active Substance: OMEPRAZOLE
     Dosage: 20,MG,DAILY
     Route: 048
     Dates: start: 2012
  5. ALLOPURINOL [Concomitant]
     Active Substance: ALLOPURINOL
     Dosage: 300,MG,DAILY
     Route: 048
     Dates: start: 20220318
  6. ALLOPURINOL [Concomitant]
     Active Substance: ALLOPURINOL
     Dosage: 300,MG,DAILY
     Route: 048
     Dates: start: 20220318, end: 20220519
  7. SULFAMETHOXAZOLE\TRIMETHOPRIM [Concomitant]
     Active Substance: SULFAMETHOXAZOLE\TRIMETHOPRIM
     Dosage: 160/800,MG,TWICE DAILY
     Route: 048
     Dates: start: 20220503, end: 20220508
  8. SULFAMETHOXAZOLE\TRIMETHOPRIM [Concomitant]
     Active Substance: SULFAMETHOXAZOLE\TRIMETHOPRIM
     Dosage: 160/800,MG,OTHER
     Route: 048
     Dates: start: 20220606
  9. ONDANSETRON [Concomitant]
     Active Substance: ONDANSETRON
     Dosage: 8,MG,THREE TIMES DAILY
     Route: 048
     Dates: start: 20220503, end: 20220508
  10. METOCLOPRAMIDE [Concomitant]
     Active Substance: METOCLOPRAMIDE
     Dosage: 1,OTHER,DAILY
     Route: 048
     Dates: start: 20220503, end: 20220508
  11. FUROSEMIDE [Concomitant]
     Active Substance: FUROSEMIDE
     Dosage: 20,MG,ONCE
     Route: 048
     Dates: start: 20220504, end: 20220504
  12. FUROSEMIDE [Concomitant]
     Active Substance: FUROSEMIDE
     Dosage: 20,MG,OTHER
     Route: 042
     Dates: start: 20220508, end: 20220527
  13. BISOPROLOL [Concomitant]
     Active Substance: BISOPROLOL
     Dosage: 2.5,MG,DAILY
     Route: 048
     Dates: start: 20220505, end: 20220519
  14. ATORVASTATIN [Concomitant]
     Active Substance: ATORVASTATIN
     Dosage: 80,MG,DAILY
     Route: 048
     Dates: start: 20220505, end: 20220508
  15. ASPIRIN [Concomitant]
     Active Substance: ASPIRIN
     Dosage: 100,MG,DAILY
     Route: 048
     Dates: start: 20220505, end: 20220519
  16. ASPIRIN [Concomitant]
     Active Substance: ASPIRIN
     Dosage: 100,MG,DAILY
     Route: 048
     Dates: start: 20220523
  17. LORAZEPAM [Concomitant]
     Active Substance: LORAZEPAM
     Dosage: 1,MG,DAILY
     Route: 048
     Dates: start: 20220508
  18. ACYCLOVIR [Concomitant]
     Active Substance: ACYCLOVIR
     Dosage: 400,MG,TWICE DAILY
     Route: 048
     Dates: start: 20220508, end: 20220509
  19. ACYCLOVIR [Concomitant]
     Active Substance: ACYCLOVIR
     Dosage: 400,MG,TWICE DAILY
     Route: 042
     Dates: start: 20220520, end: 20220527
  20. ACYCLOVIR [Concomitant]
     Active Substance: ACYCLOVIR
     Dosage: 800,MG,TWICE DAILY
     Route: 048
     Dates: start: 20220528
  21. ACYCLOVIR [Concomitant]
     Active Substance: ACYCLOVIR
     Dosage: 800,MG,TWICE DAILY
     Route: 048
     Dates: start: 20220503, end: 20220504
  22. ACYCLOVIR [Concomitant]
     Active Substance: ACYCLOVIR
     Dosage: 400,MG,TWICE DAILY
     Route: 048
     Dates: start: 20220505, end: 20220519
  23. CHLORHEXIDINE [Concomitant]
     Active Substance: CHLORHEXIDINE
     Dosage: 15,ML,THREE TIMES DAILY
     Route: 050
     Dates: start: 20220509
  24. MYCOSTATIN [Concomitant]
     Active Substance: NYSTATIN
     Dosage: 5,ML,THREE TIMES DAILY
     Route: 050
     Dates: start: 20220509, end: 20220629
  25. BEMIPARIN SODIUM [Concomitant]
     Active Substance: BEMIPARIN SODIUM
     Dosage: 3500,IU,DAILY
     Route: 058
     Dates: start: 20220509, end: 20220512
  26. BEMIPARIN SODIUM [Concomitant]
     Active Substance: BEMIPARIN SODIUM
     Dosage: 2500,IU,DAILY
     Route: 058
     Dates: start: 20220513, end: 20220518
  27. BEMIPARIN SODIUM [Concomitant]
     Active Substance: BEMIPARIN SODIUM
     Dosage: 2500,IU,DAILY
     Route: 058
     Dates: start: 20220520, end: 20220522
  28. BEMIPARIN SODIUM [Concomitant]
     Active Substance: BEMIPARIN SODIUM
     Dosage: 3500,IU,DAILY
     Route: 058
     Dates: start: 20220523, end: 20220605
  29. MAGNESIUM SULFATE [Concomitant]
     Active Substance: MAGNESIUM SULFATE
     Dosage: 1.5,G,OTHER
     Route: 042
     Dates: start: 20220509, end: 20220527
  30. ACETAMINOPHEN [Concomitant]
     Active Substance: ACETAMINOPHEN
     Dosage: 1,G,ONCE
     Route: 042
     Dates: start: 20220509, end: 20220509
  31. ACETAMINOPHEN [Concomitant]
     Active Substance: ACETAMINOPHEN
     Dosage: 1,G,ONCE
     Route: 042
     Dates: start: 20220512, end: 20220512
  32. ACETAMINOPHEN [Concomitant]
     Active Substance: ACETAMINOPHEN
     Dosage: 1,G,ONCE
     Route: 042
     Dates: start: 20220513, end: 20220513
  33. DEXCHLORPHENIRAMINE [Concomitant]
     Active Substance: DEXCHLORPHENIRAMINE
     Dosage: 5,MG,ONCE
     Route: 042
     Dates: start: 20220509, end: 20220509
  34. SODIUM CHLORIDE [Concomitant]
     Active Substance: SODIUM CHLORIDE
     Dosage: 1000,ML,TWICE DAILY
     Route: 042
     Dates: start: 20220504, end: 20220506
  35. DEXTROSE [Concomitant]
     Active Substance: DEXTROSE
     Dosage: 1000,ML,DAILY
     Route: 042
     Dates: start: 20220508, end: 20220519
  36. MAGNESIUM SULFATE [Concomitant]
     Active Substance: MAGNESIUM SULFATE
     Dosage: 1.5,G,DAILY
     Route: 042
     Dates: start: 20220509, end: 20220513
  37. CALCIUM GLUCONATE [Concomitant]
     Active Substance: CALCIUM GLUCONATE
     Dosage: 4.6,OTHER,DAILY
     Route: 042
     Dates: start: 20220518, end: 20220519
  38. OXYGEN [Concomitant]
     Active Substance: OXYGEN
     Dosage: 3,L/MIN,CONTINUOUS
     Route: 045
     Dates: start: 20220519, end: 20220522
  39. OXYGEN [Concomitant]
     Active Substance: OXYGEN
     Dosage: 3,L/MIN,CONTINUOUS
     Route: 045
     Dates: start: 20220519, end: 20220520
  40. DIBASIC POTASSIUM PHOSPHATE [Concomitant]
     Active Substance: DIBASIC POTASSIUM PHOSPHATE
     Dosage: 10,OTHER,OTHER
     Route: 042
     Dates: start: 20220525, end: 20220525
  41. DIBASIC POTASSIUM PHOSPHATE [Concomitant]
     Active Substance: DIBASIC POTASSIUM PHOSPHATE
     Dosage: 20,OTHER,DAILY
     Route: 042
     Dates: start: 20220526, end: 20220529
  42. MAGNESIUM SULFATE [Concomitant]
     Active Substance: MAGNESIUM SULFATE
     Dosage: 1.5,G,DAILY
     Route: 042
     Dates: start: 20220514, end: 20220518
  43. PAXLOVID [Concomitant]
     Active Substance: NIRMATRELVIR\RITONAVIR
     Dosage: 1,OTHER,OTHER
     Route: 050
     Dates: start: 20220719, end: 202207
  44. LEVOFLOXACIN [Concomitant]
     Active Substance: LEVOFLOXACIN
     Dosage: 500,MG,DAILY
     Route: 048
     Dates: start: 20220719, end: 202207

REACTIONS (15)
  - Postural tremor [Recovered/Resolved]
  - Cytokine release syndrome [Recovered/Resolved]
  - Psychomotor hyperactivity [Recovered/Resolved]
  - Facial paresis [Recovered/Resolved]
  - Muscular weakness [Recovered/Resolved]
  - Tremor [Recovered/Resolved]
  - Aphasia [Recovered/Resolved]
  - Aphasia [Recovered/Resolved]
  - Pyrexia [Recovered/Resolved]
  - Alanine aminotransferase increased [Recovered/Resolved]
  - Alanine aminotransferase increased [Recovered/Resolved]
  - Pyrexia [Recovered/Resolved]
  - Aspartate aminotransferase increased [Recovered/Resolved]
  - Aspartate aminotransferase increased [Recovered/Resolved]
  - Aspartate aminotransferase increased [Recovered/Resolved]

NARRATIVE: CASE EVENT DATE: 20220512
